FAERS Safety Report 9065275 (Version 1)
Quarter: 2013Q1

REPORT INFORMATION
  Report Type: Report from Study
  Country: GR (occurrence: GR)
  Receive Date: 20130214
  Receipt Date: 20130214
  Transmission Date: 20140127
  Serious: Yes (Hospitalization)
  Sender: FDA-Public Use
  Company Number: GR-ACCORD-016345

PATIENT
  Sex: 0

DRUGS (5)
  1. DOCETAXEL [Suspect]
     Indication: SQUAMOUS CELL CARCINOMA OF HEAD AND NECK
     Dosage: 1-H INFUSION ON DAY 1, FOR THREE TO FOUR CYCLES
  2. CISPLATIN [Suspect]
     Indication: SQUAMOUS CELL CARCINOMA OF HEAD AND NECK
     Dosage: 4 H INFUSION ON DAY 1, FOR 3 TO 4 CYCLES
  3. CETUXIMAB [Suspect]
     Indication: SQUAMOUS CELL CARCINOMA OF HEAD AND NECK
     Dosage: DAY 1 THREE WEEKLY
  4. 5-FU [Suspect]
     Indication: SQUAMOUS CELL CARCINOMA OF HEAD AND NECK
     Dosage: 24H INFUSION ON DAYS 1-4, FOR 3 TO 4 CYCLES
  5. DEXAMETHASONE [Concomitant]
     Indication: PROPHYLAXIS

REACTIONS (2)
  - Jugular vein thrombosis [Unknown]
  - Off label use [Unknown]
